FAERS Safety Report 8998068 (Version 2)
Quarter: 2013Q1

REPORT INFORMATION
  Report Type: Report from Study
  Country: JP (occurrence: JP)
  Receive Date: 20130104
  Receipt Date: 20130221
  Transmission Date: 20140127
  Serious: Yes (Other)
  Sender: FDA-Public Use
  Company Number: JP-ABBOTT-12P-087-1027083-00

PATIENT
  Age: 43 Year
  Sex: Male

DRUGS (3)
  1. LIPACREON [Suspect]
     Indication: PANCREATIC INSUFFICIENCY
     Route: 048
     Dates: start: 20120313
  2. SODIUM RABEPRAZOLE [Concomitant]
     Indication: PANCREATIC INSUFFICIENCY
     Route: 048
     Dates: start: 20120302
  3. SODIUM RABEPRAZOLE [Concomitant]
     Indication: PROPHYLAXIS

REACTIONS (4)
  - Gastric ulcer [Recovering/Resolving]
  - Small intestine ulcer [Recovering/Resolving]
  - Haematemesis [Recovering/Resolving]
  - Melaena [Recovering/Resolving]
